FAERS Safety Report 21064572 (Version 1)
Quarter: 2022Q3

REPORT INFORMATION
  Report Type: Spontaneous
  Country: US (occurrence: US)
  Receive Date: 20220711
  Receipt Date: 20220711
  Transmission Date: 20221027
  Serious: No
  Sender: FDA-Public Use
  Company Number: US-ELI_LILLY_AND_COMPANY-US202207003047

PATIENT
  Sex: Female
  Weight: 65.306 kg

DRUGS (1)
  1. TRULICITY [Suspect]
     Active Substance: DULAGLUTIDE
     Indication: Product used for unknown indication
     Dosage: 1.5 MG
     Route: 058

REACTIONS (3)
  - Dizziness [Unknown]
  - Decreased appetite [Unknown]
  - Nausea [Unknown]
